FAERS Safety Report 8011405-4 (Version None)
Quarter: 2011Q4

REPORT INFORMATION
  Report Type: 
  Country: None (occurrence: None)
  Receive Date: 20111228
  Receipt Date: 20111216
  Transmission Date: 20120403
  Serious: Yes (Hospitalization)
  Sender: FDA-Public Use
  Company Number: JP-UCBSA-047928

PATIENT
  Age: 20 Year
  Sex: Male

DRUGS (4)
  1. DEPAKENE [Concomitant]
     Dosage: DAILY DOSE:600 MG
     Route: 048
     Dates: start: 20111104
  2. KEPPRA [Suspect]
     Indication: IDIOPATHIC GENERALISED EPILEPSY
     Route: 048
     Dates: start: 20111104, end: 20111119
  3. KEPPRA [Suspect]
     Route: 048
     Dates: start: 20111120, end: 20111124
  4. DEPAKENE [Concomitant]
     Dosage: DAILY DOSE:800 MG
     Route: 048

REACTIONS (2)
  - CONVULSION [None]
  - BLOOD CREATINE PHOSPHOKINASE INCREASED [None]
